FAERS Safety Report 9417833 (Version 1)
Quarter: 2013Q3

REPORT INFORMATION
  Report Type: Spontaneous
  Country: US (occurrence: US)
  Receive Date: 20130724
  Receipt Date: 20130724
  Transmission Date: 20140515
  Serious: Yes (Hospitalization, Other)
  Sender: FDA-Public Use
  Company Number: US-PFIZER INC-2013212190

PATIENT
  Age: 51 Year
  Sex: Male
  Weight: 132 kg

DRUGS (3)
  1. ZITHROMAX [Suspect]
     Indication: SINUSITIS
     Dosage: 500 MG, AS NEEDED
     Dates: end: 2013
  2. INSPRA [Suspect]
     Indication: HYPERTENSION
     Dosage: 50 MG, DAILY
  3. ZOLOFT [Suspect]
     Indication: DEPRESSION
     Dosage: 50 MG, DAILY
     Dates: end: 2013

REACTIONS (1)
  - Meningioma [Recovering/Resolving]
